FAERS Safety Report 4441849-9 (Version None)
Quarter: 2004Q3

REPORT INFORMATION
  Report Type: 
  Country: None (occurrence: None)
  Receive Date: 20040901
  Receipt Date: 20040823
  Transmission Date: 20050211
  Serious: Yes (Death, Hospitalization)
  Sender: FDA-Public Use
  Company Number: 2004058212

PATIENT
  Age: 83 Year
  Sex: Female

DRUGS (2)
  1. DIABINESE [Suspect]
     Indication: DIABETES MELLITUS
     Dosage: ORAL
     Route: 048
  2. ALL OTHER THERAPEUTIC PRODUCTS (ALL OTHER THERAPEUTIC PRODUCTS) [Concomitant]

REACTIONS (5)
  - CARDIAC FAILURE [None]
  - DELIRIUM [None]
  - DYSPHONIA [None]
  - HYPOGLYCAEMIA [None]
  - SPEECH DISORDER [None]
